FAERS Safety Report 9051341 (Version 1)
Quarter: 2013Q1

REPORT INFORMATION
  Report Type: Spontaneous
  Country: US (occurrence: US)
  Receive Date: 20130206
  Receipt Date: 20130206
  Transmission Date: 20140127
  Serious: No
  Sender: FDA-Public Use
  Company Number: US-009507513-1301USA012715

PATIENT
  Age: 81 None
  Sex: Female

DRUGS (6)
  1. INVANZ [Suspect]
     Indication: URINARY TRACT INFECTION
     Dosage: UNK
     Dates: start: 20130118
  2. INVANZ [Suspect]
     Dosage: UNK
     Dates: start: 20130124
  3. JANUVIA [Concomitant]
  4. METFORMIN [Concomitant]
  5. NEURONTIN [Concomitant]
  6. PINDOLOL [Concomitant]

REACTIONS (3)
  - Asthenia [Not Recovered/Not Resolved]
  - Nausea [Not Recovered/Not Resolved]
  - Drug administration error [Unknown]
